FAERS Safety Report 15345403 (Version 1)
Quarter: 2018Q3

REPORT INFORMATION
  Report Type: Spontaneous
  Country: US (occurrence: US)
  Receive Date: 20180903
  Receipt Date: 20180903
  Transmission Date: 20181010
  Serious: Yes (Hospitalization, Other)
  Sender: FDA-Public Use
  Company Number: US-SHIRE-US201833480

PATIENT
  Age: 59 Year
  Sex: Male

DRUGS (1)
  1. GATTEX [Suspect]
     Active Substance: TEDUGLUTIDE\WATER
     Indication: SHORT-BOWEL SYNDROME
     Dosage: UNK
     Route: 065
     Dates: start: 20150123

REACTIONS (6)
  - Head injury [Recovered/Resolved]
  - Dehydration [Recovered/Resolved]
  - Dementia [Unknown]
  - Inappropriate schedule of drug administration [Recovered/Resolved]
  - Abdominal distension [Unknown]
  - Fall [Unknown]

NARRATIVE: CASE EVENT DATE: 20180817
